FAERS Safety Report 21550929 (Version 1)
Quarter: 2022Q4

REPORT INFORMATION
  Report Type: Spontaneous
  Country: NL (occurrence: NL)
  Receive Date: 20221103
  Receipt Date: 20221103
  Transmission Date: 20230113
  Serious: Yes (Other)
  Sender: FDA-Public Use
  Company Number: NL-GLAXOSMITHKLINE-NL2022EME143616

PATIENT

DRUGS (7)
  1. SERETIDE [Suspect]
     Active Substance: FLUTICASONE PROPIONATE\SALMETEROL XINAFOATE
     Indication: Asthma
     Dosage: UNK
  2. BECLOMETHASONE DIPROPIONATE [Suspect]
     Active Substance: BECLOMETHASONE DIPROPIONATE
     Indication: Product used for unknown indication
     Dosage: UNK
  3. ALBUTEROL SULFATE [Suspect]
     Active Substance: ALBUTEROL SULFATE
     Indication: Product used for unknown indication
     Dosage: UNK, 400
  4. SEREVENT DISKUS [Suspect]
     Active Substance: SALMETEROL XINAFOATE
     Indication: Product used for unknown indication
     Dosage: UNK
  5. VENTOLIN [Suspect]
     Active Substance: ALBUTEROL SULFATE
     Indication: Product used for unknown indication
     Dosage: UNK, 100
  6. VENTOLIN [Suspect]
     Active Substance: ALBUTEROL SULFATE
     Dosage: UNK, 200
  7. PULMICORT TURBUHALER [Concomitant]
     Active Substance: BUDESONIDE
     Indication: Product used for unknown indication
     Dosage: UNK

REACTIONS (19)
  - Brain injury [Unknown]
  - Suicidal ideation [Unknown]
  - Mental impairment [Unknown]
  - Asthma [Unknown]
  - Cardiac disorder [Unknown]
  - Depression [Unknown]
  - Mental disorder [Unknown]
  - Eye disorder [Unknown]
  - Thinking abnormal [Unknown]
  - Fatigue [Unknown]
  - Oropharyngeal discomfort [Unknown]
  - Cough [Unknown]
  - Headache [Unknown]
  - Dizziness [Unknown]
  - Muscle strength abnormal [Unknown]
  - Discomfort [Unknown]
  - Mood swings [Unknown]
  - Psychiatric symptom [Unknown]
  - Stress [Unknown]
